FAERS Safety Report 5443984-5 (Version None)
Quarter: 2007Q3

REPORT INFORMATION
  Report Type: 
  Country: None (occurrence: None)
  Receive Date: 20070831
  Receipt Date: 20070820
  Transmission Date: 20080115
  Serious: Yes (Hospitalization)
  Sender: FDA-Public Use
  Company Number: 2007US000066

PATIENT
  Age: 73 Year
  Sex: Male

DRUGS (1)
  1. ADENOSCAN [Suspect]
     Indication: SCAN MYOCARDIAL PERFUSION
     Dosage: IV NOS
     Route: 042
     Dates: start: 20070103, end: 20070103

REACTIONS (3)
  - ENTEROBACTER SEPSIS [None]
  - INFUSION RELATED REACTION [None]
  - PHARMACEUTICAL PRODUCT COMPLAINT [None]
